FAERS Safety Report 20824277 (Version 1)
Quarter: 2022Q2

REPORT INFORMATION
  Report Type: Spontaneous
  Country: US (occurrence: US)
  Receive Date: 20220513
  Receipt Date: 20220513
  Transmission Date: 20220721
  Serious: No
  Sender: FDA-Public Use
  Company Number: US-BRISTOL-MYERS SQUIBB COMPANY-2022-022200

PATIENT
  Age: 73 Year
  Sex: Male
  Weight: 53.1 kg

DRUGS (1)
  1. REVLIMID [Suspect]
     Active Substance: LENALIDOMIDE
     Indication: Plasma cell myeloma
     Dosage: DAILY DAYS 1-14, EVERY 21 DAYS
     Dates: start: 20220407

REACTIONS (3)
  - Dizziness [Unknown]
  - Dizziness [Unknown]
  - Nausea [Unknown]
